FAERS Safety Report 6303852-3 (Version None)
Quarter: 2009Q3

REPORT INFORMATION
  Report Type: 
  Country: None (occurrence: None)
  Receive Date: 20090807
  Receipt Date: 20090807
  Transmission Date: 20100115
  Serious: Yes (Hospitalization)
  Sender: FDA-Public Use
  Company Number: None

PATIENT
  Age: 87 Year
  Sex: Male

DRUGS (2)
  1. SULFAMETHOXAZOLE AND TRIMETHOPRIM [Suspect]
     Indication: INFECTION
     Dosage: 1 TAB, BID, PO
     Route: 048
     Dates: start: 20090406, end: 20090417
  2. SPIRONOLACTONE [Suspect]
     Dosage: 25 MG, BID, PO
     Route: 048
     Dates: start: 20080619

REACTIONS (1)
  - HYPERKALAEMIA [None]
